FAERS Safety Report 22626383 (Version 1)
Quarter: 2023Q2

REPORT INFORMATION
  Report Type: Spontaneous
  Country: US (occurrence: US)
  Receive Date: 20230621
  Receipt Date: 20230621
  Transmission Date: 20230721
  Serious: No
  Sender: FDA-Public Use
  Company Number: UNT-2022-014675

PATIENT
  Age: 32 Year
  Sex: Female
  Weight: 83.4 kg

DRUGS (5)
  1. TRAMADOL HYDROCHLORIDE [Suspect]
     Active Substance: TRAMADOL HYDROCHLORIDE
     Indication: Infusion site pain
  2. TREPROSTINIL SODIUM [Suspect]
     Active Substance: TREPROSTINIL SODIUM
     Indication: Pulmonary arterial hypertension
     Route: 058
     Dates: start: 20220623
  3. UPTRAVI [Suspect]
     Active Substance: SELEXIPAG
     Indication: Pulmonary arterial hypertension
  4. ADEMPAS [Concomitant]
     Active Substance: RIOCIGUAT
  5. OPSUMIT [Suspect]
     Active Substance: MACITENTAN

REACTIONS (8)
  - Infusion site pain [Not Recovered/Not Resolved]
  - Infusion site erythema [Unknown]
  - Nausea [Unknown]
  - Chest pain [Unknown]
  - Abdominal pain [Unknown]
  - Back pain [Unknown]
  - Infusion site swelling [Unknown]
  - Therapy non-responder [Unknown]

NARRATIVE: CASE EVENT DATE: 20220620
